FAERS Safety Report 7131968-0 (Version None)
Quarter: 2010Q4

REPORT INFORMATION
  Report Type: 
  Country: None (occurrence: None)
  Receive Date: 20101202
  Receipt Date: 20101123
  Transmission Date: 20110411
  Serious: Yes (Other)
  Sender: FDA-Public Use
  Company Number: BR-JNJFOC-20101108994

PATIENT
  Sex: Female
  Weight: 58 kg

DRUGS (4)
  1. REMICADE [Suspect]
     Indication: RHEUMATOID ARTHRITIS
     Route: 042
  2. PREDNISONE [Concomitant]
     Indication: PAIN
  3. DICLOFENAC POTASSIUM [Concomitant]
     Indication: PAIN
  4. CELEBRA [Concomitant]

REACTIONS (2)
  - HEARING IMPAIRED [None]
  - NODULE [None]
